FAERS Safety Report 10967794 (Version 1)
Quarter: 2015Q1

REPORT INFORMATION
  Report Type: Spontaneous
  Country: US (occurrence: None)
  Receive Date: 20150226
  Receipt Date: 20150226
  Transmission Date: 20150721
  Serious: No
  Sender: FDA-Public Use
  Company Number: TPA2010A01098

PATIENT
  Age: 5 Decade
  Sex: Male
  Weight: 139.2 kg

DRUGS (8)
  1. COREG [Concomitant]
     Active Substance: CARVEDILOL
  2. GEMFIBROZIL. [Concomitant]
     Active Substance: GEMFIBROZIL
  3. FLUTICASONE [Concomitant]
     Active Substance: FLUTICASONE\FLUTICASONE PROPIONATE
  4. FUROSEMIDE. [Concomitant]
     Active Substance: FUROSEMIDE
  5. HYDROCODONE [Concomitant]
     Active Substance: HYDROCODONE
  6. ULORIC [Suspect]
     Active Substance: FEBUXOSTAT
     Indication: GOUT
     Route: 048
     Dates: start: 200903, end: 2009
  7. LOVASTATIN. [Concomitant]
     Active Substance: LOVASTATIN
  8. KLOR-CON [Concomitant]
     Active Substance: POTASSIUM CHLORIDE

REACTIONS (2)
  - Dizziness [None]
  - Diarrhoea [None]

NARRATIVE: CASE EVENT DATE: 200903
